FAERS Safety Report 4700907-1 (Version None)
Quarter: 2005Q2

REPORT INFORMATION
  Report Type: 
  Country: None (occurrence: None)
  Receive Date: 20050113
  Receipt Date: 20050113
  Transmission Date: 20051028
  Serious: Yes (Other)
  Sender: FDA-Public Use
  Company Number: None

PATIENT
  Sex: Female

DRUGS (1)
  1. METFORMIN HCL [Suspect]
     Dosage: 1000MG BID
     Dates: start: 20020701, end: 20020901

REACTIONS (2)
  - DIABETES MELLITUS INADEQUATE CONTROL [None]
  - NAUSEA [None]
